FAERS Safety Report 17649443 (Version 1)
Quarter: 2020Q2

REPORT INFORMATION
  Report Type: Spontaneous
  Country: US (occurrence: US)
  Receive Date: 20200409
  Receipt Date: 20200409
  Transmission Date: 20200713
  Serious: No
  Sender: FDA-Public Use
  Company Number: US-MYLANLABS-2020M1030799

PATIENT
  Sex: Male

DRUGS (1)
  1. PROCTOFOAM HC [Suspect]
     Active Substance: HYDROCORTISONE ACETATE\PRAMOXINE HYDROCHLORIDE
     Indication: LARGE INTESTINAL HAEMORRHAGE
     Dosage: UNK UNK, QOD, ONCE EVERY OTHER DAY
     Route: 054

REACTIONS (2)
  - Product container issue [Unknown]
  - Off label use [Not Recovered/Not Resolved]
